FAERS Safety Report 5214346-0 (Version None)
Quarter: 2007Q1

REPORT INFORMATION
  Report Type: 
  Country: None (occurrence: None)
  Receive Date: 20070116
  Receipt Date: 20070103
  Transmission Date: 20070707
  Serious: Yes (Disabling)
  Sender: FDA-Public Use
  Company Number: 234544

PATIENT
  Age: 21 Year
  Sex: Female
  Weight: 62.2 kg

DRUGS (21)
  1. NUTROPIN [Suspect]
     Indication: MEDULLOBLASTOMA
     Dosage: 0.4 MG, QD, SUBCUTANEOUS
     Route: 058
     Dates: start: 19870501
  2. ATENOLOL [Concomitant]
  3. BETAXOLOL (BETAXOLOL HYDROCHLORIDE) [Concomitant]
  4. CORTEF [Concomitant]
  5. DHEA (DEHYDROEPIANDROSTERONE) [Concomitant]
  6. FLUDROCORTISONE (FLUDROCORTISONE ACETATE) [Concomitant]
  7. FLUORIDE (FLUORIDE) [Concomitant]
  8. LAMICTAL [Concomitant]
  9. LOGESTREL  0.3/30-28? (ETHINYL ESTRADIOL, NORGESTEREL) [Concomitant]
  10. MAGNESIUM SULFATE [Concomitant]
  11. MULTIVITAMIN [Concomitant]
  12. SINGULAIR [Concomitant]
  13. DRUG (GENERIC COMPONENT(S) NOT KNOWN) [Concomitant]
  14. TRILEPTAL [Concomitant]
  15. UNITHROID (LEVOTHYROXINE SODIUM) [Concomitant]
  16. VIACTIV (CALCIUM CARBONATE, CHOLECALCIFEROL, PHYTONADIONE) [Concomitant]
  17. VITAMIN D (CHOLECALCIFEROL) [Concomitant]
  18. VITAMIN E [Concomitant]
  19. PHYTONADIONE [Concomitant]
  20. ZOLOFT [Concomitant]
  21. ZYRTEC [Concomitant]

REACTIONS (2)
  - LOSS OF CONSCIOUSNESS [None]
  - VERTIGO [None]
